FAERS Safety Report 9675050 (Version 1)
Quarter: 2013Q4

REPORT INFORMATION
  Report Type: Spontaneous
  Country: US (occurrence: None)
  Receive Date: 20131105
  Receipt Date: 20131105
  Transmission Date: 20140711
  Serious: Yes (Other)
  Sender: FDA-Public Use
  Company Number: 13-04514

PATIENT
  Age: 48 Year
  Sex: Female

DRUGS (2)
  1. ALBUTEROL INHALER [Suspect]
     Indication: ASTHMA
     Dosage: 1 VIAL PO Q4H PRN 054?
  2. NEPHRON PHARMACEUTICALS CORPORATION [Suspect]

REACTIONS (4)
  - Pyrexia [None]
  - Throat irritation [None]
  - Cough [None]
  - Influenza [None]
